FAERS Safety Report 5642840-7 (Version None)
Quarter: 2008Q1

REPORT INFORMATION
  Report Type: 
  Country: None (occurrence: None)
  Receive Date: 20080228
  Receipt Date: 20080219
  Transmission Date: 20080703
  Serious: Yes (Other)
  Sender: FDA-Public Use
  Company Number: US-BAYER-200713214BCC

PATIENT
  Age: 69 Year
  Sex: Female
  Weight: 41 kg

DRUGS (3)
  1. ALEVE (CAPLET) [Suspect]
     Indication: OSTEOARTHRITIS
     Dosage: UNIT DOSE: 220 MG
     Route: 048
     Dates: start: 20070929
  2. ALEVE (CAPLET) [Suspect]
     Dosage: TOTAL DAILY DOSE: 220 MG  UNIT DOSE: 220 MG
     Route: 048
     Dates: start: 20071003
  3. HIGH BLOOD PRESSURE MEDICATION [Concomitant]

REACTIONS (2)
  - VISUAL DISTURBANCE [None]
  - VITREOUS FLOATERS [None]
